FAERS Safety Report 8027756-3 (Version None)
Quarter: 2012Q1

REPORT INFORMATION
  Report Type: 
  Country: None (occurrence: None)
  Receive Date: 20120106
  Receipt Date: 20120106
  Transmission Date: 20120608
  Serious: Yes (Life-Threatening, Disabling, Other)
  Sender: FDA-Public Use
  Company Number: None

PATIENT
  Age: 7 Day
  Sex: Male
  Weight: 3.6287 kg

DRUGS (1)
  1. LANOXIN [Suspect]
     Indication: CARDIAC DISORDER
     Dosage: 0.3 ML
     Route: 048
     Dates: start: 20111027, end: 20111231

REACTIONS (4)
  - SCREAMING [None]
  - TOXICITY TO VARIOUS AGENTS [None]
  - ABDOMINAL PAIN UPPER [None]
  - PAINFUL DEFAECATION [None]
